FAERS Safety Report 10628014 (Version 1)
Quarter: 2014Q4

REPORT INFORMATION
  Report Type: Spontaneous
  Country: US (occurrence: US)
  Receive Date: 20141205
  Receipt Date: 20141205
  Transmission Date: 20150529
  Serious: Yes (Hospitalization)
  Sender: FDA-Public Use
  Company Number: US-BRISTOL-MYERS SQUIBB COMPANY-20572400

PATIENT
  Age: 58 Year
  Sex: Female
  Weight: 102.04 kg

DRUGS (1)
  1. ERBITUX [Suspect]
     Active Substance: CETUXIMAB
     Indication: COLON CANCER METASTATIC

REACTIONS (6)
  - Rash [Unknown]
  - Pruritus [Unknown]
  - Fatigue [Unknown]
  - Metastases to ovary [Unknown]
  - Nausea [Unknown]
  - Diarrhoea [Unknown]
